FAERS Safety Report 6249377-5 (Version None)
Quarter: 2009Q2

REPORT INFORMATION
  Report Type: 
  Country: None (occurrence: None)
  Receive Date: 20090625
  Receipt Date: 20090625
  Transmission Date: 20091009
  Serious: No
  Sender: FDA-Public Use
  Company Number: None

PATIENT
  Age: 64 Year
  Sex: Female
  Weight: 81.1939 kg

DRUGS (2)
  1. ZICAM NO --DRIP GEL, ADULTS + KIDS B40709 EXP 08/06,3A31132, 3B401 [Suspect]
     Dosage: MEASURED PACKAGE 1 TO 2 TIMES DAY NASAL
     Route: 045
  2. ZICAM NO-- DRIP LIQUID SPRAY ADULT B40939 08/07 [Suspect]
     Dosage: MEASURED SPRAY 1 TO 2 TIMES DAY NASAL
     Route: 045

REACTIONS (1)
  - ANOSMIA [None]
